FAERS Safety Report 4800061-1 (Version None)
Quarter: 2005Q4

REPORT INFORMATION
  Report Type: 
  Country: None (occurrence: None)
  Receive Date: 20051013
  Receipt Date: 20050930
  Transmission Date: 20060501
  Serious: Yes (Hospitalization, Disabling)
  Sender: FDA-Public Use
  Company Number: 2005119159

PATIENT
  Age: 4 Year
  Sex: Female
  Weight: 15.5 kg

DRUGS (6)
  1. SOLU-MEDROL [Suspect]
     Indication: KAWASAKI'S DISEASE
     Dosage: 450 MG (ONE TIME DOSE), INTRAVENOUS
     Route: 042
     Dates: start: 20031211, end: 20031211
  2. AZITHROMYCIN [Suspect]
     Indication: LYMPHADENITIS BACTERIAL
     Dosage: INTRAVENOUS
     Route: 042
     Dates: start: 20031101, end: 20031101
  3. AZITHROMYCIN [Suspect]
     Indication: PNEUMONIA
     Dosage: INTRAVENOUS
     Route: 042
     Dates: start: 20031101, end: 20031101
  4. CARBENIN (BETAMIPRON, PANIPENEM) [Concomitant]
  5. GAMIMUNE N 5% [Concomitant]
  6. AMPICILLIN SODIUM W/SULBACTAM SODIUM (AMPICILLIN SODIUM, SULBACTAM SOD [Concomitant]

REACTIONS (11)
  - ASPARTATE AMINOTRANSFERASE INCREASED [None]
  - CULTURE POSITIVE [None]
  - DEAFNESS NEUROSENSORY [None]
  - HAEMOPHILUS INFECTION [None]
  - HEPATIC FUNCTION ABNORMAL [None]
  - KAWASAKI'S DISEASE [None]
  - MOUTH ULCERATION [None]
  - PERICARDIAL EFFUSION [None]
  - PNEUMONIA [None]
  - RESPIRATORY RATE INCREASED [None]
  - THERAPY NON-RESPONDER [None]
